FAERS Safety Report 8588803-3 (Version None)
Quarter: 2012Q3

REPORT INFORMATION
  Report Type: 
  Country: None (occurrence: None)
  Receive Date: 20120813
  Receipt Date: 20120809
  Transmission Date: 20120928
  Serious: Yes (Hospitalization, Other)
  Sender: FDA-Public Use
  Company Number: PHEH2009US09109

PATIENT
  Sex: Female

DRUGS (24)
  1. NEXIUM [Concomitant]
  2. PROTONIX [Concomitant]
     Dosage: 40 MG, QD
     Route: 048
  3. GLUCOSAMINE [Concomitant]
  4. DIATX [Concomitant]
  5. CLINDAMYCIN [Concomitant]
     Dosage: 2 DF, TID
  6. PREDNISONE TAB [Concomitant]
  7. ARANESP [Concomitant]
  8. AMITRIPTYLINE HCL [Concomitant]
  9. KEFLEX [Concomitant]
  10. PLAQUENIL [Concomitant]
  11. COREG [Concomitant]
  12. HYDROCODONE BITARTRATE [Concomitant]
  13. COZAAR [Concomitant]
  14. HYDROCORTISONE [Concomitant]
     Dosage: 1 DF, Q4H, PRN
     Route: 048
  15. AREDIA [Suspect]
     Indication: MULTIPLE MYELOMA
     Dosage: 90 MG,
     Route: 042
  16. SODIUM BICARBONATE [Concomitant]
  17. ZOLOFT [Concomitant]
  18. ASCORBIC ACID [Concomitant]
  19. ARICEPT [Concomitant]
  20. IMMUNOSUPPRESSANTS [Concomitant]
  21. ZOMETA [Suspect]
     Indication: MULTIPLE MYELOMA
     Dosage: 4 MG, QMO
     Dates: end: 20050501
  22. TETRACYCLINE HYDROCHLORIDE [Concomitant]
  23. PERCOCET [Concomitant]
  24. NIFEREX [Concomitant]
     Dosage: 150 MG, QD
     Route: 048

REACTIONS (69)
  - PERICARDIAL EFFUSION [None]
  - PNEUMONIA [None]
  - OSTEOMYELITIS [None]
  - FALL [None]
  - PELVIC FRACTURE [None]
  - PHOTOSENSITIVITY REACTION [None]
  - OSTEOPOROSIS [None]
  - HAEMATOMA [None]
  - PARATHYROID TUMOUR BENIGN [None]
  - OEDEMA PERIPHERAL [None]
  - CARDIAC FAILURE CONGESTIVE [None]
  - DEFORMITY [None]
  - CARDIAC TAMPONADE [None]
  - OSTEONECROSIS [None]
  - PARALYSIS [None]
  - METABOLIC ACIDOSIS [None]
  - PANIC ATTACK [None]
  - IDIOPATHIC THROMBOCYTOPENIC PURPURA [None]
  - DECUBITUS ULCER [None]
  - LYMPHADENOPATHY [None]
  - MITRAL VALVE INCOMPETENCE [None]
  - INTERSTITIAL LUNG DISEASE [None]
  - ANAEMIA [None]
  - HYPERKERATOSIS [None]
  - DYSPNOEA [None]
  - INFECTION [None]
  - EXPOSED BONE IN JAW [None]
  - ARTHRALGIA [None]
  - HYPOTENSION [None]
  - LOWER EXTREMITY MASS [None]
  - SEROSITIS [None]
  - NECROSIS [None]
  - OSTEONECROSIS OF JAW [None]
  - PAIN [None]
  - MOUTH ULCERATION [None]
  - ORAL PAIN [None]
  - PLEURISY [None]
  - TACHYCARDIA [None]
  - PAIN IN EXTREMITY [None]
  - OTORRHOEA [None]
  - GENERAL PHYSICAL HEALTH DETERIORATION [None]
  - PRIMARY SEQUESTRUM [None]
  - PERONEAL NERVE PALSY [None]
  - TRICUSPID VALVE INCOMPETENCE [None]
  - OSTEOARTHRITIS [None]
  - NEUROPATHY PERIPHERAL [None]
  - OSTEOPENIA [None]
  - UPPER RESPIRATORY TRACT INFECTION [None]
  - HYPOAESTHESIA [None]
  - THYROID NEOPLASM [None]
  - PLEURAL EFFUSION [None]
  - GINGIVAL PAIN [None]
  - RIGHT ATRIAL DILATATION [None]
  - CONGESTIVE CARDIOMYOPATHY [None]
  - HERPES ZOSTER [None]
  - HYPERTENSION [None]
  - LIMB INJURY [None]
  - DEAFNESS [None]
  - PROTEINURIA [None]
  - RENAL FAILURE [None]
  - ANXIETY [None]
  - PERICARDITIS [None]
  - SKIN ULCER [None]
  - DEPRESSION [None]
  - RENAL ATROPHY [None]
  - HOMOCYSTINAEMIA [None]
  - MALNUTRITION [None]
  - GASTROOESOPHAGEAL REFLUX DISEASE [None]
  - WEIGHT DECREASED [None]
